FAERS Safety Report 6998939-6 (Version None)
Quarter: 2010Q3

REPORT INFORMATION
  Report Type: 
  Country: None (occurrence: None)
  Receive Date: 20100920
  Receipt Date: 20070522
  Transmission Date: 20110219
  Serious: Yes (Hospitalization, Other)
  Sender: FDA-Public Use
  Company Number: US-ASTRAZENECA-2006UW22959

PATIENT
  Age: 33 Year
  Sex: Female
  Weight: 86.2 kg

DRUGS (14)
  1. SEROQUEL [Suspect]
     Indication: NERVOUSNESS
     Route: 048
     Dates: start: 20030913, end: 20060101
  2. SEROQUEL [Suspect]
     Indication: DEPRESSION
     Route: 048
     Dates: start: 20030913, end: 20060101
  3. SEROQUEL [Suspect]
     Route: 048
     Dates: start: 20030917
  4. SEROQUEL [Suspect]
     Route: 048
     Dates: start: 20030917
  5. TRAZODONE HCL [Concomitant]
     Indication: SLEEP DISORDER
     Dates: start: 19960301
  6. TRAZODONE HCL [Concomitant]
     Dosage: 50 MG ONE TO TWO AS REQUIRED, 150 MG
     Dates: start: 20030917
  7. VALCYTE [Concomitant]
     Route: 048
     Dates: start: 20060613
  8. ETHAMBUTOL HYDROCHLORIDE [Concomitant]
     Dosage: 400 - 1000 MG DAILY
     Route: 048
     Dates: start: 20050801
  9. BIAXIN [Concomitant]
     Dates: start: 20050801
  10. RIFABUTIN [Concomitant]
     Dates: start: 20060613
  11. NORVIR [Concomitant]
     Route: 048
     Dates: start: 20060613
  12. EPIVIR [Concomitant]
     Route: 048
     Dates: start: 20060613
  13. ZIAGEN [Concomitant]
     Dosage: STRENGTH: 600 MG PER 30 ML, DOSE: 600 MG TWO TIMES A DAY
     Dates: start: 20060613
  14. NEURONTIN [Concomitant]
     Route: 048
     Dates: start: 20060613

REACTIONS (1)
  - PANCREATITIS [None]
